FAERS Safety Report 16286130 (Version 1)
Quarter: 2019Q2

REPORT INFORMATION
  Report Type: Spontaneous
  Country: US (occurrence: US)
  Receive Date: 20190507
  Receipt Date: 20190507
  Transmission Date: 20190711
  Serious: Yes (Life-Threatening, Other)
  Sender: FDA-Public Use
  Company Number: None

PATIENT
  Age: 2 Year
  Weight: 11 kg

DRUGS (1)
  1. EPINEPHRINESNAP [Suspect]
     Active Substance: EPINEPHRINE

REACTIONS (1)
  - Patient-device incompatibility [None]

NARRATIVE: CASE EVENT DATE: 20190503
